FAERS Safety Report 20932760 (Version 4)
Quarter: 2023Q2

REPORT INFORMATION
  Report Type: Report from Study
  Country: US (occurrence: US)
  Receive Date: 20220608
  Receipt Date: 20230605
  Transmission Date: 20230722
  Serious: Yes (Other)
  Sender: FDA-Public Use
  Company Number: US-NOVARTISTESTPH-NVSC2022US130832

PATIENT
  Sex: Male

DRUGS (1)
  1. ENTRESTO [Suspect]
     Active Substance: SACUBITRIL\VALSARTAN
     Indication: Product used for unknown indication
     Dosage: 1 DOSAGE FORM, BID, (24/26 MG)
     Route: 048
     Dates: start: 202205

REACTIONS (7)
  - Myocardial infarction [Unknown]
  - Somnolence [Unknown]
  - Hyperhidrosis [Unknown]
  - Swelling face [Unknown]
  - Abnormal dreams [Unknown]
  - Cough [Unknown]
  - Inappropriate schedule of product administration [Unknown]
